FAERS Safety Report 9728354 (Version 1)
Quarter: 2013Q4

REPORT INFORMATION
  Report Type: Spontaneous
  Country: US (occurrence: None)
  Receive Date: 20131203
  Receipt Date: 20131203
  Transmission Date: 20140711
  Serious: Yes (Other)
  Sender: FDA-Public Use
  Company Number: None

PATIENT
  Age: 37 Year
  Sex: Male
  Weight: 75.75 kg

DRUGS (2)
  1. SEROQUEL XR [Suspect]
     Indication: SCHIZOPHRENIA
     Dates: start: 2011, end: 2013
  2. SEROQUEL XR [Suspect]
     Indication: BIPOLAR DISORDER
     Dates: start: 2011, end: 2013

REACTIONS (15)
  - Aggression [None]
  - Homicide [None]
  - Confusional state [None]
  - Heart rate irregular [None]
  - Amnesia [None]
  - Agitation [None]
  - Anxiety [None]
  - Depression [None]
  - Hallucination [None]
  - Hostility [None]
  - Impulse-control disorder [None]
  - Panic attack [None]
  - Disturbance in attention [None]
  - Judgement impaired [None]
  - Suicidal ideation [None]
